APPROVED DRUG PRODUCT: ATTRUBY
Active Ingredient: ACORAMIDIS HYDROCHLORIDE
Strength: EQ 356MG BASE
Dosage Form/Route: TABLET;ORAL
Application: N216540 | Product #001
Applicant: BRIDGEBIO PHARMA INC
Approved: Nov 22, 2024 | RLD: Yes | RS: Yes | Type: RX

PATENTS:
Patent 9169214 | Expires: May 5, 2031
Patent 9913826 | Expires: May 5, 2031
Patent 11058668 | Expires: Mar 22, 2039
Patent 10842777 | Expires: May 5, 2031
Patent 11919865 | Expires: Feb 16, 2038
Patent 12070449 | Expires: Mar 22, 2039
Patent 12005043 | Expires: Aug 16, 2039
Patent 10398681 | Expires: May 5, 2031
Patent 9642838 | Expires: May 5, 2031
Patent 8877795 | Expires: May 5, 2031
Patent 10513497 | Expires: Feb 16, 2038
Patent 11260047 | Expires: Aug 16, 2039

EXCLUSIVITY:
Code: NCE | Date: Nov 22, 2029
Code: ODE-506 | Date: Nov 22, 2031